FAERS Safety Report 19020000 (Version 1)
Quarter: 2021Q1

REPORT INFORMATION
  Report Type: Spontaneous
  Country: US (occurrence: US)
  Receive Date: 20210317
  Receipt Date: 20210317
  Transmission Date: 20210420
  Serious: Yes (Hospitalization, Other)
  Sender: FDA-Public Use
  Company Number: US-SA-2021SA078021

PATIENT
  Age: 79 Year
  Sex: Male

DRUGS (4)
  1. ENOXAPARIN SODIUM. [Suspect]
     Active Substance: ENOXAPARIN SODIUM
     Indication: ATRIAL FLUTTER
     Dosage: UNK
     Route: 058
  2. APIXABAN [Concomitant]
     Active Substance: APIXABAN
  3. DILTIAZEM. [Concomitant]
     Active Substance: DILTIAZEM
     Indication: SUPRAVENTRICULAR TACHYCARDIA
     Route: 041
  4. METOPROLOL. [Concomitant]
     Active Substance: METOPROLOL
     Indication: HEART RATE ABNORMAL

REACTIONS (12)
  - Swelling [Unknown]
  - Shock haemorrhagic [Unknown]
  - Acute kidney injury [Unknown]
  - Blood urea nitrogen/creatinine ratio increased [Unknown]
  - Renal tubular necrosis [Unknown]
  - Condition aggravated [Unknown]
  - Hypotension [Unknown]
  - Chest wall haematoma [Unknown]
  - Extravasation blood [Unknown]
  - Nephropathy [Unknown]
  - Haemoglobin decreased [Unknown]
  - Haematocrit decreased [Unknown]
